FAERS Safety Report 4597728-X (Version None)
Quarter: 2005Q1

REPORT INFORMATION
  Report Type: 
  Country: None (occurrence: None)
  Receive Date: 20050125
  Receipt Date: 20040819
  Transmission Date: 20050727
  Serious: No
  Sender: FDA-Public Use
  Company Number: USA040876050

PATIENT
  Age: 57 Year
  Sex: Female

DRUGS (7)
  1. FORTEO [Suspect]
     Indication: OSTEOARTHRITIS
     Dates: start: 20040816
  2. PERCOCET [Concomitant]
  3. LIBRAX [Concomitant]
  4. ULTRACET [Concomitant]
  5. CELEXA [Concomitant]
  6. LORAZEPAM [Concomitant]
  7. CALCIUM GLUCONATE [Concomitant]

REACTIONS (1)
  - INJECTION SITE ERYTHEMA [None]
